FAERS Safety Report 6151408-8 (Version None)
Quarter: 2009Q2

REPORT INFORMATION
  Report Type: 
  Country: None (occurrence: None)
  Receive Date: 20090410
  Receipt Date: 20090401
  Transmission Date: 20091009
  Serious: Yes (Other)
  Sender: FDA-Public Use
  Company Number: US-BIOGENIDEC-2009BI007706

PATIENT
  Age: 33 Year
  Sex: Female

DRUGS (2)
  1. TYSABRI [Suspect]
     Indication: MULTIPLE SCLEROSIS
     Route: 042
     Dates: start: 20090109
  2. TYSABRI [Suspect]
     Dates: start: 20090301

REACTIONS (11)
  - CEREBROVASCULAR ACCIDENT [None]
  - COUGH [None]
  - FATIGUE [None]
  - GENERAL SYMPTOM [None]
  - HEADACHE [None]
  - HYPERSENSITIVITY [None]
  - HYPOAESTHESIA [None]
  - NASOPHARYNGITIS [None]
  - PHARYNGITIS STREPTOCOCCAL [None]
  - URTICARIA [None]
  - WHITE BLOOD CELL COUNT INCREASED [None]
